FAERS Safety Report 13674345 (Version 1)
Quarter: 2017Q2

REPORT INFORMATION
  Report Type: Spontaneous
  Country: IR (occurrence: IR)
  Receive Date: 20170621
  Receipt Date: 20170621
  Transmission Date: 20170830
  Serious: Yes (Other)
  Sender: FDA-Public Use
  Company Number: IR-009507513-1706IRN008815

PATIENT
  Age: 10 Year
  Sex: Female

DRUGS (2)
  1. NOXAFIL [Suspect]
     Active Substance: POSACONAZOLE
     Dosage: UNK
     Route: 048
     Dates: start: 2017, end: 2017
  2. VORICONAZOLE. [Concomitant]
     Active Substance: VORICONAZOLE
     Indication: ASPERGILLUS INFECTION
     Dosage: UNK
     Dates: start: 2017

REACTIONS (1)
  - Pancreatitis [Recovered/Resolved]

NARRATIVE: CASE EVENT DATE: 2017
